FAERS Safety Report 5558586-X (Version None)
Quarter: 2007Q4

REPORT INFORMATION
  Report Type: 
  Country: None (occurrence: None)
  Receive Date: 20071214
  Receipt Date: 20070904
  Transmission Date: 20080405
  Serious: No
  Sender: FDA-Public Use
  Company Number: US-ABBOTT-07P-163-0416103-00

PATIENT
  Sex: Female
  Weight: 100 kg

DRUGS (6)
  1. HUMIRA [Suspect]
     Indication: RHEUMATOID ARTHRITIS
     Route: 058
     Dates: start: 20060901
  2. HUMIRA [Suspect]
     Indication: PITYRIASIS RUBRA PILARIS
  3. METHOTREXATE [Concomitant]
     Indication: RHEUMATOID ARTHRITIS
  4. METHOTREXATE [Concomitant]
     Indication: PITYRIASIS RUBRA PILARIS
  5. INFLIXIMAB [Concomitant]
     Indication: RHEUMATOID ARTHRITIS
     Route: 042
     Dates: start: 20070301
  6. INFLIXIMAB [Concomitant]
     Indication: PITYRIASIS RUBRA PILARIS

REACTIONS (1)
  - DRUG INEFFECTIVE [None]
